FAERS Safety Report 20732888 (Version 1)
Quarter: 2022Q2

REPORT INFORMATION
  Report Type: Spontaneous
  Country: None (occurrence: DE)
  Receive Date: 20220420
  Receipt Date: 20220420
  Transmission Date: 20220720
  Serious: Yes (Other)
  Sender: FDA-Public Use
  Company Number: DE-Ascend Therapeutics US, LLC-2127993

PATIENT
  Age: 63 Year
  Sex: Female

DRUGS (4)
  1. ESTROGEL [Suspect]
     Active Substance: ESTRADIOL
     Indication: Product used for unknown indication
     Route: 065
     Dates: end: 2021
  2. ESTROGEL [Suspect]
     Active Substance: ESTRADIOL
  3. ESTRADIOL [Suspect]
     Active Substance: ESTRADIOL
     Route: 065
     Dates: end: 2021
  4. PROGESTERONE [Suspect]
     Active Substance: PROGESTERONE
     Route: 065
     Dates: end: 2021

REACTIONS (5)
  - Hyperthyroidism [Unknown]
  - Thyroid disorder [Unknown]
  - Hyperhidrosis [Unknown]
  - Insomnia [Unknown]
  - Therapy cessation [None]

NARRATIVE: CASE EVENT DATE: 20210101
